FAERS Safety Report 6207287-3 (Version None)
Quarter: 2009Q2

REPORT INFORMATION
  Report Type: 
  Country: None (occurrence: None)
  Receive Date: 20090527
  Receipt Date: 20090527
  Transmission Date: 20091009
  Serious: Yes (Other)
  Sender: FDA-Public Use
  Company Number: None

PATIENT
  Age: 37 Year
  Sex: Female
  Weight: 58.9676 kg

DRUGS (1)
  1. YAZ [Suspect]
     Indication: MENSTRUAL DISORDER
     Dates: start: 20090301, end: 20090517

REACTIONS (10)
  - ABDOMINAL DISTENSION [None]
  - FATIGUE [None]
  - FLATULENCE [None]
  - HUNGER [None]
  - INSOMNIA [None]
  - IRRITABILITY [None]
  - MOOD ALTERED [None]
  - PARTNER STRESS [None]
  - THINKING ABNORMAL [None]
  - WEIGHT INCREASED [None]
